FAERS Safety Report 25248338 (Version 2)
Quarter: 2025Q3

REPORT INFORMATION
  Report Type: Spontaneous
  Country: US (occurrence: US)
  Receive Date: 20250429
  Receipt Date: 20250811
  Transmission Date: 20251020
  Serious: No
  Sender: STALLERGENES
  Company Number: US-STALCOR-2025-AER-00434

PATIENT
  Age: 8 Year
  Sex: Male

DRUGS (4)
  1. PALFORZIA [Suspect]
     Active Substance: PEANUT
     Indication: Food allergy
     Dosage: 6X1MG: LVL2: MIX CONTENTS OF CAPSULES WELL WITH SEMISOLID FOOD AS DIRECTED AND CONSUME ONCE DAILY AT
     Route: 048
  2. ALBUTEROL [Concomitant]
     Active Substance: ALBUTEROL
     Indication: Product used for unknown indication
  3. FLONASE ALLERGY RELIEF [Concomitant]
     Active Substance: FLUTICASONE PROPIONATE
     Indication: Product used for unknown indication
  4. ZYRTEC [Concomitant]
     Active Substance: CETIRIZINE HYDROCHLORIDE
     Indication: Product used for unknown indication

REACTIONS (2)
  - Gastroenteritis viral [Recovered/Resolved]
  - Product dose omission issue [Recovered/Resolved]

NARRATIVE: CASE EVENT DATE: 20250125
